FAERS Safety Report 18748615 (Version 1)
Quarter: 2021Q1

REPORT INFORMATION
  Report Type: Spontaneous
  Country: JP (occurrence: JP)
  Receive Date: 20210116
  Receipt Date: 20210116
  Transmission Date: 20210419
  Serious: Yes (Hospitalization)
  Sender: FDA-Public Use
  Company Number: JP-MACLEODS PHARMACEUTICALS US LTD-MAC2021029751

PATIENT

DRUGS (1)
  1. DONEPEZIL. [Suspect]
     Active Substance: DONEPEZIL
     Indication: PRODUCT USED FOR UNKNOWN INDICATION
     Dosage: 45 MILLIGRAM
     Route: 065

REACTIONS (5)
  - Bradycardia [Recovered/Resolved]
  - Vomiting [Recovered/Resolved]
  - Sinus arrhythmia [Recovered/Resolved]
  - Respiratory failure [Recovered/Resolved]
  - Overdose [Recovered/Resolved]
